FAERS Safety Report 9150020 (Version 5)
Quarter: 2013Q3

REPORT INFORMATION
  Report Type: Spontaneous
  Country: JP (occurrence: JP)
  Receive Date: 20130308
  Receipt Date: 20130701
  Transmission Date: 20140515
  Serious: Yes (Hospitalization)
  Sender: FDA-Public Use
  Company Number: JP-ABBOTT-13P-087-1056362-00

PATIENT
  Age: 16 Year
  Sex: Male
  Weight: 65 kg

DRUGS (12)
  1. HUMIRA [Suspect]
     Indication: CROHN^S DISEASE
     Route: 058
     Dates: start: 20130214, end: 20130214
  2. HUMIRA [Suspect]
  3. HUMIRA [Suspect]
     Dates: start: 20130214
  4. PARENTERAL NUTRITION [Concomitant]
     Indication: CROHN^S DISEASE
     Dosage: 1-3 TIMES/DAY
     Route: 048
     Dates: start: 20120919, end: 20121024
  5. PARENTERAL NUTRITION [Concomitant]
     Dosage: 1-3 TIMES/DAY
     Dates: start: 20121025, end: 20130225
  6. PARENTERAL NUTRITION [Concomitant]
     Dosage: 1-3 TIMES/DAY
     Dates: start: 20130314, end: 20130317
  7. PARENTERAL NUTRITION [Concomitant]
     Dosage: 1-3 TIMES/DAY
     Dates: start: 20130318, end: 20130321
  8. PARENTERAL NUTRITION [Concomitant]
     Dosage: 1-3 TIMES/DAY
     Dates: start: 20130322
  9. MESALAZINE [Concomitant]
     Indication: CROHN^S DISEASE
     Route: 048
     Dates: start: 20120919, end: 20130225
  10. KILLED ESCHERICHIA COLI SUSPENSION/HYDROCORTISONE [Concomitant]
     Indication: ANAL FISTULA
     Route: 054
     Dates: start: 20121220, end: 20130225
  11. ACETAMINOPHEN [Concomitant]
     Indication: PYREXIA
     Route: 048
  12. FLAVINE ADENINE DINUCLEOTIDE [Concomitant]
     Indication: STOMATITIS
     Route: 048
     Dates: start: 20130214, end: 20130225

REACTIONS (5)
  - Mouth ulceration [Recovered/Resolved]
  - Infection [Unknown]
  - Influenza [Recovered/Resolved]
  - Varicella [Recovered/Resolved]
  - Erythema nodosum [Recovering/Resolving]
